FAERS Safety Report 19580986 (Version 1)
Quarter: 2021Q3

REPORT INFORMATION
  Report Type: Spontaneous
  Country: US (occurrence: US)
  Receive Date: 20210719
  Receipt Date: 20210719
  Transmission Date: 20211014
  Serious: No
  Sender: FDA-Public Use
  Company Number: None

PATIENT
  Sex: Female
  Weight: 58.5 kg

DRUGS (13)
  1. MIRATAZAPINE [Concomitant]
     Active Substance: MIRTAZAPINE
  2. XARELTO [Concomitant]
     Active Substance: RIVAROXABAN
  3. NOVOLOG [Concomitant]
     Active Substance: INSULIN ASPART
  4. VENLAFAXINE [Concomitant]
     Active Substance: VENLAFAXINE HYDROCHLORIDE
  5. BUSPIRONE [Concomitant]
     Active Substance: BUSPIRONE HYDROCHLORIDE
  6. GLIPIZIDE. [Concomitant]
     Active Substance: GLIPIZIDE
  7. PANTOPRAZOLE [Concomitant]
     Active Substance: PANTOPRAZOLE
  8. PROCHLORPERAZINE MALEATE. [Concomitant]
     Active Substance: PROCHLORPERAZINE MALEATE
  9. TRAMADOL. [Concomitant]
     Active Substance: TRAMADOL
  10. PIQRAY [Suspect]
     Active Substance: ALPELISIB
     Indication: BONE CANCER
     Route: 048
  11. EXEMESTANE. [Concomitant]
     Active Substance: EXEMESTANE
  12. AFINITOR [Concomitant]
     Active Substance: EVEROLIMUS
  13. LEVOTHYROXINE. [Concomitant]
     Active Substance: LEVOTHYROXINE

REACTIONS (3)
  - Nausea [None]
  - Blood glucose increased [None]
  - Vomiting [None]
